FAERS Safety Report 11809790 (Version 2)
Quarter: 2015Q4

REPORT INFORMATION
  Report Type: Spontaneous
  Country: US (occurrence: US)
  Receive Date: 20151208
  Receipt Date: 20151230
  Transmission Date: 20160305
  Serious: Yes (Other)
  Sender: FDA-Public Use
  Company Number: US-BEH-2015056368

PATIENT
  Sex: Male
  Weight: 81 kg

DRUGS (16)
  1. DOXYCYCLINE. [Concomitant]
     Active Substance: DOXYCYCLINE
  2. HIZENTRA [Suspect]
     Active Substance: HUMAN IMMUNOGLOBULIN G
     Indication: IMMUNODEFICIENCY COMMON VARIABLE
     Dosage: ??-FEB-2011
     Route: 058
  3. LMX [Concomitant]
     Active Substance: LIDOCAINE
  4. LORATADINE. [Concomitant]
     Active Substance: LORATADINE
  5. STOOL SOFTNER [Concomitant]
  6. AUGMENTIN [Concomitant]
     Active Substance: AMOXICILLIN\CLAVULANATE POTASSIUM
  7. EPIPEN [Concomitant]
     Active Substance: EPINEPHRINE
  8. ASPIRIN. [Concomitant]
     Active Substance: ASPIRIN
  9. CARTIA XT [Concomitant]
     Active Substance: DILTIAZEM HYDROCHLORIDE
  10. WELLBUTRIN [Concomitant]
     Active Substance: BUPROPION HYDROCHLORIDE
  11. PREDNISONE. [Concomitant]
     Active Substance: PREDNISONE
  12. AMOXICILLIN. [Concomitant]
     Active Substance: AMOXICILLIN
  13. DIPHENHYDRAMINE. [Concomitant]
     Active Substance: DIPHENHYDRAMINE
  14. COREG [Concomitant]
     Active Substance: CARVEDILOL
  15. OMEPRAZOLE. [Concomitant]
     Active Substance: OMEPRAZOLE
  16. LEVAQUIN [Concomitant]
     Active Substance: LEVOFLOXACIN

REACTIONS (1)
  - Pneumonia [Unknown]
